FAERS Safety Report 14778045 (Version 1)
Quarter: 2018Q2

REPORT INFORMATION
  Report Type: Spontaneous
  Country: US (occurrence: US)
  Receive Date: 20180419
  Receipt Date: 20180419
  Transmission Date: 20180711
  Serious: No
  Sender: FDA-Public Use
  Company Number: US-BAYER-2018-075417

PATIENT

DRUGS (4)
  1. ALLEGRA-D [FEXOFENADINE HYDROCHLORIDE,PSEUDOEPHEDRINE HYDROCHLORID [Concomitant]
  2. ZYRTEC [Concomitant]
     Active Substance: CETIRIZINE HYDROCHLORIDE
  3. CLARITIN [Suspect]
     Active Substance: LORATADINE
     Dosage: UNK
  4. BENADRYL [Concomitant]
     Active Substance: DIPHENHYDRAMINE HYDROCHLORIDE

REACTIONS (1)
  - Drug ineffective [Unknown]
